FAERS Safety Report 9186246 (Version 2)
Quarter: 2013Q2

REPORT INFORMATION
  Report Type: Spontaneous
  Country: JP (occurrence: JP)
  Receive Date: 20130325
  Receipt Date: 20130408
  Transmission Date: 20140414
  Serious: Yes (Life-Threatening, Hospitalization)
  Sender: FDA-Public Use
  Company Number: JP-GLAXOSMITHKLINE-B0863685A

PATIENT
  Age: 74 Year
  Sex: Male
  Weight: 55 kg

DRUGS (10)
  1. FLOLAN [Suspect]
     Indication: PULMONARY ARTERIAL HYPERTENSION
     Route: 042
     Dates: start: 20130119, end: 20130211
  2. VOLIBRIS [Suspect]
     Indication: PULMONARY ARTERIAL HYPERTENSION
     Dosage: .5IUAX PER DAY
     Route: 048
  3. SAMSCA [Concomitant]
     Indication: RIGHT VENTRICULAR FAILURE
     Dosage: 1IUAX PER DAY
     Route: 048
  4. UNKNOWN DRUG [Concomitant]
     Indication: POLYCYTHAEMIA VERA
     Route: 065
  5. UNKNOWN DRUG [Concomitant]
     Indication: MYELOFIBROSIS
     Route: 065
  6. WARFARIN [Concomitant]
     Route: 048
  7. REVATIO [Concomitant]
     Route: 048
  8. LANSOPRAZOLE [Concomitant]
     Route: 048
  9. FUROSEMIDE [Concomitant]
     Route: 048
  10. DOBUTAMINE HYDROCHLORIDE [Concomitant]

REACTIONS (2)
  - Gastric haemorrhage [Recovering/Resolving]
  - Platelet count decreased [Not Recovered/Not Resolved]
